FAERS Safety Report 18643060 (Version 1)
Quarter: 2020Q4

REPORT INFORMATION
  Report Type: Spontaneous
  Country: US (occurrence: US)
  Receive Date: 20201220
  Receipt Date: 20201220
  Transmission Date: 20210114
  Serious: No
  Sender: FDA-Public Use
  Company Number: None

PATIENT
  Age: 29 Year
  Sex: Female
  Weight: 54 kg

DRUGS (1)
  1. 12 HOUR NASAL DECONGESTANT [Suspect]
     Active Substance: PSEUDOEPHEDRINE HYDROCHLORIDE
     Indication: SINUSITIS
     Dosage: ?          QUANTITY:1 CAPSULE(S);?
     Route: 048
     Dates: start: 20201212, end: 20201213

REACTIONS (6)
  - Palpitations [None]
  - Dyspnoea [None]
  - Nausea [None]
  - Diarrhoea [None]
  - Dry mouth [None]
  - Blood pressure increased [None]

NARRATIVE: CASE EVENT DATE: 20201213
